FAERS Safety Report 15677457 (Version 4)
Quarter: 2019Q2

REPORT INFORMATION
  Report Type: Report from Study
  Country: CO (occurrence: CO)
  Receive Date: 20181130
  Receipt Date: 20190522
  Transmission Date: 20190711
  Serious: Yes (Other)
  Sender: FDA-Public Use
  Company Number: PHHY2018CO065441

PATIENT
  Sex: Male
  Weight: 73 kg

DRUGS (6)
  1. ATORVASTATIN [Suspect]
     Active Substance: ATORVASTATIN
     Indication: BLOOD CHOLESTEROL ABNORMAL
     Dosage: 20 MG, QD
     Route: 048
  2. LOSARTAN. [Suspect]
     Active Substance: LOSARTAN
     Dosage: 50 MG, Q12H
     Route: 048
  3. ATORVASTATIN [Suspect]
     Active Substance: ATORVASTATIN
     Indication: HYPERTENSION
     Dosage: 20 MG, QHS
     Route: 065
  4. LOSARTAN. [Suspect]
     Active Substance: LOSARTAN
     Indication: HYPERTENSION
     Dosage: 50 MG, QD
     Route: 065
  5. SANDOSTATIN LAR DEPOT [Suspect]
     Active Substance: OCTREOTIDE ACETATE
     Indication: NEUROENDOCRINE TUMOUR
     Dosage: 30 MG, QMO
     Route: 030
     Dates: start: 201404
  6. PAROXETINE. [Concomitant]
     Active Substance: PAROXETINE
     Indication: PRODUCT USED FOR UNKNOWN INDICATION
     Dosage: 2 MG, QHS
     Route: 065

REACTIONS (11)
  - Diabetes mellitus [Recovering/Resolving]
  - Disorientation [Recovered/Resolved]
  - Feeling abnormal [Unknown]
  - General physical health deterioration [Unknown]
  - Dementia Alzheimer^s type [Recovering/Resolving]
  - Neurological decompensation [Unknown]
  - Coordination abnormal [Not Recovered/Not Resolved]
  - Prostatomegaly [Unknown]
  - Anxiety [Unknown]
  - Pollakiuria [Unknown]
  - Blood cholesterol increased [Unknown]

NARRATIVE: CASE EVENT DATE: 2017
